FAERS Safety Report 6218354-2 (Version None)
Quarter: 2009Q2

REPORT INFORMATION
  Report Type: 
  Country: None (occurrence: None)
  Receive Date: 20090608
  Receipt Date: 20090529
  Transmission Date: 20091009
  Serious: Yes (Death)
  Sender: FDA-Public Use
  Company Number: A0787409A

PATIENT
  Age: 41 Year
  Sex: Female

DRUGS (2)
  1. FLOLAN [Suspect]
     Route: 042
     Dates: end: 20090528
  2. POLYPHARMACY [Concomitant]

REACTIONS (2)
  - DEATH [None]
  - PULMONARY HYPERTENSION [None]
